FAERS Safety Report 8316938-9 (Version None)
Quarter: 2012Q2

REPORT INFORMATION
  Report Type: 
  Country: None (occurrence: None)
  Receive Date: 20120427
  Receipt Date: 20120420
  Transmission Date: 20120825
  Serious: Yes (Other)
  Sender: FDA-Public Use
  Company Number: NL-PFIZER INC-2012083502

PATIENT
  Age: 24 Year
  Sex: Female

DRUGS (1)
  1. DEPO-PROVERA [Suspect]
     Indication: CONTRACEPTION
     Dosage: UNK
     Dates: start: 20070201

REACTIONS (3)
  - INJECTION SITE REACTION [None]
  - INJECTION SITE ATROPHY [None]
  - FIBROMYALGIA [None]
